FAERS Safety Report 12921983 (Version 5)
Quarter: 2016Q4

REPORT INFORMATION
  Report Type: Report from Study
  Country: DE (occurrence: DE)
  Receive Date: 20161108
  Receipt Date: 20161216
  Transmission Date: 20170207
  Serious: Yes (Other)
  Sender: FDA-Public Use
  Company Number: PHHY2016DE151209

PATIENT
  Age: 50 Year
  Sex: Female

DRUGS (1)
  1. SIGNIFOR [Suspect]
     Active Substance: PASIREOTIDE
     Indication: PITUITARY-DEPENDENT CUSHING^S SYNDROME
     Dosage: 1.2 MG, BID
     Route: 058
     Dates: start: 20150916

REACTIONS (4)
  - Vomiting [Unknown]
  - Infection susceptibility increased [Not Recovered/Not Resolved]
  - Infection [Unknown]
  - Gastrointestinal infection [Unknown]

NARRATIVE: CASE EVENT DATE: 20160416
